FAERS Safety Report 6324798-0 (Version None)
Quarter: 2009Q3

REPORT INFORMATION
  Report Type: 
  Country: None (occurrence: None)
  Receive Date: 20090824
  Receipt Date: 20090624
  Transmission Date: 20100115
  Serious: No
  Sender: FDA-Public Use
  Company Number: US-ABBOTT-09P-163-0582004-00

PATIENT
  Sex: Male
  Weight: 80.812 kg

DRUGS (6)
  1. NIASPAN [Suspect]
     Indication: BLOOD CHOLESTEROL
  2. NIASPAN [Suspect]
     Dates: end: 20090301
  3. NIASPAN [Suspect]
     Dates: start: 20090301
  4. AGGRENOX [Concomitant]
     Indication: ARTERIAL STENOSIS
     Dosage: 25/200
  5. DIOVAN HCT [Concomitant]
     Indication: BLOOD PRESSURE
     Dosage: 320/25
  6. NORVASC [Concomitant]
     Indication: BLOOD PRESSURE

REACTIONS (1)
  - BLOOD GLUCOSE INCREASED [None]
